FAERS Safety Report 5610747-7 (Version None)
Quarter: 2008Q1

REPORT INFORMATION
  Report Type: 
  Country: None (occurrence: None)
  Receive Date: 20080201
  Receipt Date: 20080114
  Transmission Date: 20080703
  Serious: Yes (Hospitalization, Other)
  Sender: FDA-Public Use
  Company Number: US-BAYER-US-2006-027833

PATIENT
  Age: 36 Year
  Sex: Male

DRUGS (8)
  1. CAMPATH [Suspect]
     Indication: MULTIPLE SCLEROSIS
     Dosage: UNIT DOSE: 24 MG
     Route: 042
     Dates: start: 20030602, end: 20030605
  2. CAMPATH [Suspect]
     Dosage: UNIT DOSE: 24 MG
     Route: 042
     Dates: start: 20050607, end: 20060609
  3. CAMPATH [Suspect]
     Dosage: UNIT DOSE: 24 MG
     Route: 042
     Dates: start: 20040602, end: 20040604
  4. FIORICET [Concomitant]
     Dates: start: 20060302
  5. ZOLOFT [Concomitant]
     Dates: start: 20040325
  6. PAMELOR [Concomitant]
     Dates: start: 20040331
  7. COUMADIN [Concomitant]
     Dates: start: 20050216
  8. BACLOFEN [Concomitant]
     Dates: start: 20050715

REACTIONS (2)
  - HYPERTHYROIDISM [None]
  - HYPOTHYROIDISM [None]
